FAERS Safety Report 24667362 (Version 2)
Quarter: 2025Q1

REPORT INFORMATION
  Report Type: Spontaneous
  Country: JP (occurrence: JP)
  Receive Date: 20241126
  Receipt Date: 20250210
  Transmission Date: 20250408
  Serious: Yes (Hospitalization)
  Sender: EISAI
  Company Number: JP-Eisai-202411109_LEN-EC_P_1

PATIENT
  Age: 67 Year
  Sex: Female

DRUGS (3)
  1. LENVIMA [Suspect]
     Active Substance: LENVATINIB
     Indication: Uterine cancer
  2. LENVIMA [Suspect]
     Active Substance: LENVATINIB
  3. KEYTRUDA [Suspect]
     Active Substance: PEMBROLIZUMAB
     Indication: Uterine cancer

REACTIONS (7)
  - Fulminant type 1 diabetes mellitus [Unknown]
  - Cardiomyopathy [Unknown]
  - Confusional state [Unknown]
  - Mania [Unknown]
  - Proteinuria [Recovered/Resolved]
  - Hepatic enzyme increased [Recovered/Resolved]
  - Hypothyroidism [Recovered/Resolved]
